FAERS Safety Report 10071999 (Version 2)
Quarter: 2014Q2

REPORT INFORMATION
  Report Type: Spontaneous
  Country: US (occurrence: None)
  Receive Date: 20140314
  Receipt Date: 20140423
  Transmission Date: 20141212
  Serious: Yes (Hospitalization, Other)
  Sender: FDA-Public Use
  Company Number: SYM-2014-18541

PATIENT
  Age: 45 Year
  Sex: Female
  Weight: 64.86 kg

DRUGS (4)
  1. WELLBUTRIN [Suspect]
     Indication: DEPRESSION
     Dosage: 150 MG EACH MORNING AND 100MG EACH MORNING
     Dates: end: 20140107
  2. AMPYRA [Suspect]
     Indication: GAIT DISTURBANCE
     Route: 048
     Dates: start: 20100604, end: 20131123
  3. MINOOCYCLINE (MINOCYCLINE) (MINOCYCLINE) [Concomitant]
  4. SYNTHROID (LEVOTHYROXINE SODIUM) (LEVOTHYROXINE SODIUM) [Concomitant]

REACTIONS (3)
  - Convulsion [None]
  - Accidental overdose [None]
  - Back pain [None]
